APPROVED DRUG PRODUCT: TRANEXAMIC ACID
Active Ingredient: TRANEXAMIC ACID
Strength: 100MG/ML
Dosage Form/Route: INJECTABLE;INJECTION
Application: A205228 | Product #001
Applicant: ZYDUS PHARMACEUTICALS USA INC
Approved: Jul 17, 2017 | RLD: No | RS: No | Type: DISCN